FAERS Safety Report 7370959 (Version 4)
Quarter: 2013Q1

REPORT INFORMATION
  Report Type: Report from Study
  Country: US (occurrence: US)
  Receive Date: 20100429
  Receipt Date: 20130327
  Transmission Date: 20140127
  Serious: Yes (Death, Life-Threatening, Hospitalization, Disabling, Other)
  Sender: FDA-Public Use
  Company Number: PHHO2010US06479

PATIENT
  Age: 76 Year
  Sex: Female
  Weight: 48.73 kg

DRUGS (23)
  1. AFINITOR [Suspect]
     Indication: ADENOCARCINOMA
     Dosage: UNK
     Route: 048
     Dates: start: 20100414, end: 20100422
  2. CARBOPLATIN [Suspect]
     Indication: ADENOCARCINOMA
     Dosage: 360 MG, UNK
     Route: 042
     Dates: start: 20100414, end: 20100414
  3. ETOPOSIDE [Suspect]
     Indication: ADENOCARCINOMA
     Dosage: 114 MG, UNK
     Route: 042
     Dates: start: 20100414, end: 20100416
  4. FOSAMAX [Concomitant]
  5. ASPIRIN [Concomitant]
  6. LOTENSIN HCT [Concomitant]
  7. CALCIUM [Concomitant]
  8. COREG [Concomitant]
  9. IRON [Concomitant]
  10. LACTULOSE [Concomitant]
  11. LORAZEPAM [Concomitant]
  12. MEGACE [Concomitant]
  13. GLUCOPHAGE [Concomitant]
  14. METFORMIN [Concomitant]
  15. ZOFRAN [Concomitant]
  16. PRAVACOL [Concomitant]
  17. COMPAZINE [Concomitant]
  18. ROBINUL [Concomitant]
  19. XENADERM [Concomitant]
  20. FENTANYL [Concomitant]
  21. VERSED [Concomitant]
  22. MORPHINE [Concomitant]
  23. LACRI-LUBE [Concomitant]

REACTIONS (25)
  - Embolic stroke [Fatal]
  - Cerebral infarction [Fatal]
  - Cerebral haemorrhage [Fatal]
  - Coma [Fatal]
  - Abasia [Fatal]
  - Dysarthria [Fatal]
  - Asthenia [Fatal]
  - Confusional state [Fatal]
  - Subarachnoid haemorrhage [Fatal]
  - Brain stem infarction [Fatal]
  - Mental disorder [Fatal]
  - Brain herniation [Fatal]
  - Haemorrhage intracranial [Fatal]
  - Malignant neoplasm progression [Fatal]
  - Bone lesion [Fatal]
  - Pericardial effusion [Unknown]
  - Neutropenia [Unknown]
  - Haemoglobin decreased [Unknown]
  - Platelet count decreased [Unknown]
  - Diastolic dysfunction [Unknown]
  - Aortic valve incompetence [Unknown]
  - Pulmonary valve incompetence [Unknown]
  - Tricuspid valve incompetence [Unknown]
  - Somnolence [Unknown]
  - Speech disorder [Unknown]
